FAERS Safety Report 8292390-7 (Version None)
Quarter: 2012Q2

REPORT INFORMATION
  Report Type: 
  Country: None (occurrence: None)
  Receive Date: 20120417
  Receipt Date: 20120410
  Transmission Date: 20120825
  Serious: Yes (Hospitalization, Other)
  Sender: FDA-Public Use
  Company Number: US-ABBOTT-12P-163-0924390-00

PATIENT
  Sex: Female
  Weight: 68.1 kg

DRUGS (2)
  1. HUMIRA [Suspect]
     Indication: CROHN'S DISEASE
     Dosage: STARTED WITH LOADING DOSE OF 160MG; FOLLOWED BY 80MG 2 WEEKS LATER
     Dates: start: 20111201, end: 20120201
  2. ASACOL [Concomitant]
     Indication: PRODUCT USED FOR UNKNOWN INDICATION

REACTIONS (8)
  - INTESTINAL OBSTRUCTION [None]
  - COLECTOMY [None]
  - DIARRHOEA [None]
  - BLOOD IRON DECREASED [None]
  - ABDOMINAL PAIN [None]
  - HEADACHE [None]
  - MALABSORPTION [None]
  - HAEMATOCHEZIA [None]
